FAERS Safety Report 8202817-4 (Version None)
Quarter: 2012Q1

REPORT INFORMATION
  Report Type: 
  Country: None (occurrence: None)
  Receive Date: 20120312
  Receipt Date: 20120312
  Transmission Date: 20120608
  Serious: Yes (Death)
  Sender: FDA-Public Use
  Company Number: None

PATIENT
  Age: 70 Year
  Sex: Female
  Weight: 153.2 kg

DRUGS (2)
  1. EFFIENT [Suspect]
     Indication: PERCUTANEOUS CORONARY INTERVENTION
     Dosage: 60.0 MG
     Route: 048
     Dates: start: 20111031, end: 20111031
  2. PLAVIX [Concomitant]
     Indication: PERCUTANEOUS CORONARY INTERVENTION
     Dosage: 600 MG
     Route: 048
     Dates: start: 20111031, end: 20111031

REACTIONS (2)
  - CEREBRAL HAEMATOMA [None]
  - COMA [None]
